FAERS Safety Report 7771481-0 (Version None)
Quarter: 2011Q3

REPORT INFORMATION
  Report Type: 
  Country: None (occurrence: None)
  Receive Date: 20110922
  Receipt Date: 20100809
  Transmission Date: 20111222
  Serious: No
  Sender: FDA-Public Use
  Company Number: US-ASTRAZENECA-2010SE39438

PATIENT
  Sex: Male

DRUGS (3)
  1. SEROQUEL [Suspect]
     Indication: DEPRESSION
     Route: 048
  2. REMERON [Concomitant]
     Indication: DEPRESSION
  3. ATIVAN [Concomitant]
     Indication: ANXIETY

REACTIONS (1)
  - ABNORMAL BEHAVIOUR [None]
